FAERS Safety Report 9187437 (Version 2)
Quarter: 2013Q2

REPORT INFORMATION
  Report Type: Spontaneous
  Country: FR (occurrence: FR)
  Receive Date: 20130325
  Receipt Date: 20130412
  Transmission Date: 20140414
  Serious: Yes (Hospitalization, Other)
  Sender: FDA-Public Use
  Company Number: FR-JNJFOC-20130311961

PATIENT
  Age: 78 Year
  Sex: Female

DRUGS (9)
  1. XARELTO [Suspect]
     Indication: CEREBROVASCULAR ACCIDENT PROPHYLAXIS
     Route: 048
     Dates: start: 20121204, end: 20130208
  2. XARELTO [Suspect]
     Indication: ATRIAL FIBRILLATION
     Route: 048
     Dates: start: 20121204, end: 20130208
  3. FLECAINE [Concomitant]
     Route: 065
  4. PREVISCAN (FLUINDIONE) [Concomitant]
     Route: 065
  5. ACTONEL [Concomitant]
     Route: 065
  6. GAVISCON (ANTACID) [Concomitant]
     Route: 065
  7. PARIET [Concomitant]
     Route: 065
  8. DILTIAZEM [Concomitant]
     Route: 065
  9. ALDACTAZINE [Concomitant]
     Route: 065

REACTIONS (3)
  - Ischaemic stroke [Recovered/Resolved]
  - Balance disorder [Recovered/Resolved]
  - Drug ineffective [Unknown]
